FAERS Safety Report 8488971-8 (Version None)
Quarter: 2012Q3

REPORT INFORMATION
  Report Type: 
  Country: None (occurrence: None)
  Receive Date: 20120705
  Receipt Date: 20120625
  Transmission Date: 20120928
  Serious: Yes (Hospitalization, Other)
  Sender: FDA-Public Use
  Company Number: US-ASTRAZENECA-2011SE04238

PATIENT
  Age: 32 Year
  Sex: Female
  Weight: 56.7 kg

DRUGS (18)
  1. SEROQUEL [Suspect]
     Dosage: 50 MG TWO TABLETS AT NIGHT
     Route: 048
  2. SEROQUEL [Suspect]
     Route: 048
  3. SEROQUEL [Suspect]
     Indication: BIPOLAR DISORDER
     Route: 048
     Dates: start: 20100101
  4. SEROQUEL [Suspect]
     Route: 048
  5. SEROQUEL [Suspect]
     Route: 048
  6. VICODIN [Concomitant]
     Indication: KNEE OPERATION
  7. SEROQUEL [Suspect]
     Route: 048
     Dates: start: 20101101
  8. SEROQUEL [Suspect]
     Dosage: 2X25 MG IN THE MORNING AND 5X25 MG AT BEDTIME
     Route: 048
     Dates: start: 20101101
  9. SEROQUEL [Suspect]
     Route: 048
     Dates: start: 20101101
  10. SEROQUEL [Suspect]
     Dosage: 2X25 MG IN THE MORNING AND 5X25 MG AT BEDTIME
     Route: 048
     Dates: start: 20101101
  11. SEROQUEL [Suspect]
     Route: 048
  12. SEROQUEL [Suspect]
     Route: 048
  13. AMBIEN [Concomitant]
     Dosage: AT BEDTIME
  14. HYDROCODONE BITARTRATE [Concomitant]
     Indication: JOINT INJURY
  15. SEROQUEL [Suspect]
     Indication: POST-TRAUMATIC STRESS DISORDER
     Route: 048
     Dates: start: 20100101
  16. SEROQUEL [Suspect]
     Dosage: 50 MG TWO TABLETS AT NIGHT
     Route: 048
  17. SEROQUEL [Suspect]
     Route: 048
  18. SYNTHROID [Concomitant]
     Indication: HYPOTHYROIDISM

REACTIONS (31)
  - NIGHTMARE [None]
  - HEADACHE [None]
  - MANIA [None]
  - AGGRESSION [None]
  - INTENTIONAL DRUG MISUSE [None]
  - DRUG INEFFECTIVE [None]
  - INSOMNIA [None]
  - MALAISE [None]
  - FEELING OF RELAXATION [None]
  - BIPOLAR DISORDER [None]
  - LIGAMENT RUPTURE [None]
  - CRYING [None]
  - NEGATIVE THOUGHTS [None]
  - ABNORMAL DREAMS [None]
  - EYE PAIN [None]
  - SUICIDAL IDEATION [None]
  - FEELING ABNORMAL [None]
  - BACK INJURY [None]
  - ANGER [None]
  - LETHARGY [None]
  - HOMICIDAL IDEATION [None]
  - DEPRESSED MOOD [None]
  - NAUSEA [None]
  - ADVERSE EVENT [None]
  - DYSPNOEA [None]
  - OFF LABEL USE [None]
  - DRUG INEFFECTIVE FOR UNAPPROVED INDICATION [None]
  - CONVULSION [None]
  - LAZINESS [None]
  - REACTION TO DRUG EXCIPIENTS [None]
  - DRUG DOSE OMISSION [None]
